FAERS Safety Report 7258830-7 (Version None)
Quarter: 2011Q1

REPORT INFORMATION
  Report Type: 
  Country: None (occurrence: None)
  Receive Date: 20110129
  Receipt Date: 20100521
  Transmission Date: 20110831
  Serious: No
  Sender: FDA-Public Use
  Company Number: US-ABBOTT-10P-163-0647589-00

PATIENT
  Sex: Female

DRUGS (3)
  1. HUMIRA [Suspect]
     Indication: PSORIATIC ARTHROPATHY
     Route: 050
     Dates: start: 20090501
  2. LYRICA [Concomitant]
     Indication: BURNING MOUTH SYNDROME
     Dates: start: 20090101
  3. LUNESTA [Concomitant]
     Indication: SLEEP DISORDER THERAPY

REACTIONS (3)
  - DRUG EFFECT DECREASED [None]
  - ARTHRALGIA [None]
  - JOINT STIFFNESS [None]
